FAERS Safety Report 15125989 (Version 6)
Quarter: 2019Q2

REPORT INFORMATION
  Report Type: Spontaneous
  Country: US (occurrence: US)
  Receive Date: 20180710
  Receipt Date: 20190501
  Transmission Date: 20190711
  Serious: No
  Sender: FDA-Public Use
  Company Number: US-BIOGEN-2018BI00605544

PATIENT
  Age: 60 Year
  Sex: Female

DRUGS (1)
  1. AVONEX [Suspect]
     Active Substance: INTERFERON BETA-1A
     Indication: MULTIPLE SCLEROSIS
     Route: 050
     Dates: start: 20080108

REACTIONS (13)
  - Nasopharyngitis [Unknown]
  - Insomnia [Unknown]
  - Burning sensation [Recovered/Resolved]
  - Learning disorder [Not Recovered/Not Resolved]
  - Multiple sclerosis relapse [Unknown]
  - Headache [Unknown]
  - Irritability [Unknown]
  - Hypoacusis [Unknown]
  - Joint injury [Unknown]
  - Bone pain [Unknown]
  - Fall [Recovered/Resolved]
  - Nervousness [Unknown]
  - Aphasia [Unknown]

NARRATIVE: CASE EVENT DATE: 201807
